FAERS Safety Report 7327301-1 (Version None)
Quarter: 2011Q1

REPORT INFORMATION
  Report Type: 
  Country: None (occurrence: None)
  Receive Date: 20110302
  Receipt Date: 20110220
  Transmission Date: 20110831
  Serious: Yes (Hospitalization, Other)
  Sender: FDA-Public Use
  Company Number: HR-ABBOTT-10P-216-0632387-00

PATIENT
  Age: 55 Year
  Sex: Male

DRUGS (9)
  1. HUMIRA [Suspect]
     Indication: RHEUMATOID ARTHRITIS
     Dates: end: 20100201
  2. MEDROL [Concomitant]
     Indication: RHEUMATOID ARTHRITIS
     Dosage: 4 MG X 1
     Dates: end: 20100310
  3. FOISCIN [Concomitant]
     Indication: PRODUCT USED FOR UNKNOWN INDICATION
     Dosage: 2X1
  4. FERRUM LEK [Concomitant]
     Indication: PRODUCT USED FOR UNKNOWN INDICATION
     Dosage: 1X1
     Dates: end: 20100310
  5. SANVAL [Concomitant]
     Indication: PRODUCT USED FOR UNKNOWN INDICATION
     Dosage: 1X1
  6. HUMIRA [Suspect]
     Dosage: RESTARTED
  7. ANTPYRETIC [Concomitant]
     Indication: PRODUCT USED FOR UNKNOWN INDICATION
  8. NORMABEL [Concomitant]
     Indication: PRODUCT USED FOR UNKNOWN INDICATION
     Dosage: 1X1
     Dates: end: 20100310
  9. ARAVA [Concomitant]
     Indication: RHEUMATOID ARTHRITIS

REACTIONS (18)
  - MYALGIA [None]
  - CHILLS [None]
  - IMPAIRED SELF-CARE [None]
  - PYREXIA [None]
  - GENERAL PHYSICAL HEALTH DETERIORATION [None]
  - ABASIA [None]
  - FEELING ABNORMAL [None]
  - TOXICITY TO VARIOUS AGENTS [None]
  - MUSCULAR WEAKNESS [None]
  - ARTHRALGIA [None]
  - SEPSIS [None]
  - DEMYELINATION [None]
  - COMA [None]
  - PAIN IN EXTREMITY [None]
  - BACK PAIN [None]
  - MOBILITY DECREASED [None]
  - PARALYSIS [None]
  - MUSCLE ATROPHY [None]
